FAERS Safety Report 5395264-4 (Version None)
Quarter: 2007Q3

REPORT INFORMATION
  Report Type: 
  Country: None (occurrence: None)
  Receive Date: 20070724
  Receipt Date: 20070719
  Transmission Date: 20080115
  Serious: Yes (Life-Threatening)
  Sender: FDA-Public Use
  Company Number: US-ASTRAZENECA-2007UW17108

PATIENT
  Age: 65 Year
  Sex: Male

DRUGS (3)
  1. CASODEX [Suspect]
     Indication: PROSTATE CANCER
     Route: 048
     Dates: start: 20070609, end: 20070716
  2. TAXOTERE [Suspect]
     Route: 042
     Dates: start: 20070611, end: 20070702
  3. LUPRON [Suspect]
     Route: 030
     Dates: start: 20070611, end: 20070611

REACTIONS (1)
  - NEUTROPENIA [None]
